FAERS Safety Report 19573454 (Version 3)
Quarter: 2021Q4

REPORT INFORMATION
  Report Type: Report from Study
  Country: None (occurrence: US)
  Receive Date: 20210717
  Receipt Date: 20211025
  Transmission Date: 20220303
  Serious: Yes (Hospitalization)
  Sender: FDA-Public Use
  Company Number: US-ABBVIE-21K-163-3990948-00

PATIENT
  Age: 68 Year
  Sex: Female

DRUGS (3)
  1. RINVOQ [Suspect]
     Active Substance: UPADACITINIB
     Indication: Rheumatoid arthritis
     Route: 048
  2. RINVOQ [Suspect]
     Active Substance: UPADACITINIB
     Route: 048
  3. JANSSEN COVID-19 VACCINE [Suspect]
     Active Substance: AD26.COV2.S
     Indication: COVID-19 immunisation
     Dosage: JOHNSON + JOHNSON
     Route: 030
     Dates: start: 202103, end: 202103

REACTIONS (6)
  - Migraine [Recovered/Resolved]
  - Blood pressure abnormal [Recovering/Resolving]
  - Weight decreased [Unknown]
  - COVID-19 [Recovered/Resolved]
  - Hypertension [Recovering/Resolving]
  - Hypertonic bladder [Unknown]

NARRATIVE: CASE EVENT DATE: 20210101
